FAERS Safety Report 4937113-1 (Version None)
Quarter: 2006Q1

REPORT INFORMATION
  Report Type: 
  Country: None (occurrence: None)
  Receive Date: 20060302
  Receipt Date: 20060214
  Transmission Date: 20060701
  Serious: No
  Sender: FDA-Public Use
  Company Number: 33474

PATIENT
  Age: 63 Year
  Sex: Female

DRUGS (3)
  1. BRINZOLAMIDE 1% SUSPENSION (AZOPT) [Suspect]
     Indication: GLAUCOMA
     Dosage: 1 GTT OS BID OPHT
     Route: 047
     Dates: start: 20051005
  2. XALACOM [Concomitant]
  3. LAMOTRIGINE [Concomitant]

REACTIONS (1)
  - CONVULSION [None]
